FAERS Safety Report 6487256-9 (Version None)
Quarter: 2009Q4

REPORT INFORMATION
  Report Type: 
  Country: None (occurrence: None)
  Receive Date: 20091210
  Receipt Date: 20091207
  Transmission Date: 20100525
  Serious: Yes (Hospitalization)
  Sender: FDA-Public Use
  Company Number: US-JNJFOC-20090805345

PATIENT
  Sex: Female
  Weight: 68.04 kg

DRUGS (11)
  1. DOXIL [Suspect]
     Dosage: DURING CYCLE 6 OF VELCADE THERAPY
     Route: 042
  2. DOXIL [Suspect]
     Dosage: DOSE HELD DURING EITHER CYCLE 3 OR CYCLE 4
     Route: 042
  3. DOXIL [Suspect]
     Indication: MULTIPLE MYELOMA
     Dosage: DAY 4 FOLLOWING VELCADE
     Route: 042
  4. VELCADE [Suspect]
     Route: 042
  5. VELCADE [Suspect]
     Indication: MULTIPLE MYELOMA
     Route: 042
  6. TYLENOL (CAPLET) [Suspect]
     Route: 048
  7. TYLENOL (CAPLET) [Suspect]
     Indication: PAIN
     Route: 048
  8. CIPRO [Suspect]
     Indication: CYSTITIS
     Route: 065
  9. ZOFRAN [Suspect]
     Indication: PREMEDICATION
     Route: 065
  10. ASPIRIN [Concomitant]
     Indication: HEADACHE
     Route: 065
  11. DEXAMETHASONE TAB [Concomitant]
     Indication: PREMEDICATION
     Route: 065

REACTIONS (7)
  - CYSTITIS [None]
  - GASTROENTERITIS VIRAL [None]
  - PALMAR-PLANTAR ERYTHRODYSAESTHESIA SYNDROME [None]
  - PNEUMONIA [None]
  - RASH GENERALISED [None]
  - RASH PRURITIC [None]
  - WHITE BLOOD CELL COUNT DECREASED [None]
